FAERS Safety Report 23260208 (Version 1)
Quarter: 2023Q4

REPORT INFORMATION
  Report Type: Report from Study
  Country: HU (occurrence: HU)
  Receive Date: 20231204
  Receipt Date: 20231204
  Transmission Date: 20240109
  Serious: Yes (Hospitalization)
  Sender: FDA-Public Use
  Company Number: HU-ABBVIE-5519571

PATIENT
  Sex: Male

DRUGS (9)
  1. CARBIDOPA\LEVODOPA [Suspect]
     Active Substance: CARBIDOPA\LEVODOPA
     Indication: Parkinson^s disease
     Dosage: MORNING DOSE: 6.4 ML; CONTINUOUS DOSE: 4.1 ML/HOUR; EXTRA DOSE: 1.0 ML
     Route: 050
     Dates: start: 20221207
  2. CARBIDOPA\LEVODOPA [Suspect]
     Active Substance: CARBIDOPA\LEVODOPA
  3. ATORVASTATIN [Concomitant]
     Active Substance: ATORVASTATIN
     Indication: Hyperlipidaemia
     Dosage: 20 MILLIGRAM
  4. ELIQUIS [Concomitant]
     Active Substance: APIXABAN
     Indication: Atrial fibrillation
     Dosage: 10 MILLIGRAM
  5. NARVA SR [Concomitant]
     Indication: Hypertension
     Dosage: 1.5 MILLIGRAM
  6. ISOSORBIDE MONONITRATE [Concomitant]
     Active Substance: ISOSORBIDE MONONITRATE
     Indication: Hyperlipidaemia
     Dosage: 60 MILLIGRAM
  7. NEUPRO [Concomitant]
     Active Substance: ROTIGOTINE
     Indication: Parkinson^s disease
     Dosage: NEUPRO TTS 6 MILLIGRAM
  8. AMILORID [Concomitant]
     Indication: Hypertension
  9. PIRACETAM [Concomitant]
     Active Substance: PIRACETAM
     Indication: Dizziness
     Dosage: 1 TABLET DAILY

REACTIONS (3)
  - Fall [Unknown]
  - Subdural haematoma [Unknown]
  - Somnolence [Not Recovered/Not Resolved]

NARRATIVE: CASE EVENT DATE: 20231120
